FAERS Safety Report 5320179-7 (Version None)
Quarter: 2007Q2

REPORT INFORMATION
  Report Type: 
  Country: None (occurrence: None)
  Receive Date: 20070503
  Receipt Date: 20070427
  Transmission Date: 20071010
  Serious: Yes (Death)
  Sender: FDA-Public Use
  Company Number: 163-20785-07041511

PATIENT
  Age: 75 Year
  Sex: Female
  Weight: 46.2669 kg

DRUGS (20)
  1. THALOMID [Suspect]
     Indication: MULTIPLE MYELOMA
     Dosage: 400 MG, 8 IN 1 D, ORAL
     Route: 048
     Dates: start: 20070110, end: 20070403
  2. AMBIEN [Concomitant]
  3. ANUSOL-HC (ANUSOL-HC) [Concomitant]
  4. ARANESP [Concomitant]
  5. PHENTONOL (FENTANYL) [Concomitant]
  6. FLOVENT [Concomitant]
  7. MIACALCIN [Concomitant]
  8. MS CONTIN [Concomitant]
  9. NEPHROCAPS ( NEPHROCAPS) [Concomitant]
  10. VITAMIN B COMPLEX WITH C BEMINAL WITH C FORTIS) [Concomitant]
  11. FOLIC ACID [Concomitant]
  12. NEUTRA-PHOS (NEUTRA-PHOS) [Concomitant]
  13. NIACIN (NICOTINIC ACIDD) [Concomitant]
  14. PAXIL [Concomitant]
  15. POTASSIUM CHLORIDE [Concomitant]
  16. PROTONIX (PANTROPRAZOLE) [Concomitant]
  17. MORPHINE SULFATE [Concomitant]
  18. SENA-S  (COLOXYL WIT SENNA) [Concomitant]
  19. SORBITOL (SORBITOL) [Concomitant]
  20. DECADRON [Concomitant]

REACTIONS (2)
  - CHRONIC OBSTRUCTIVE PULMONARY DISEASE [None]
  - RENAL FAILURE [None]
